FAERS Safety Report 10090092 (Version 6)
Quarter: 2015Q4

REPORT INFORMATION
  Report Type: Report from Study
  Country: US (occurrence: US)
  Receive Date: 20140421
  Receipt Date: 20151124
  Transmission Date: 20160304
  Serious: Yes (Hospitalization, Other)
  Sender: FDA-Public Use
  Company Number: US-ACTELION-A-US2013-80749

PATIENT
  Age: 49 Year
  Sex: Female

DRUGS (11)
  1. TRACLEER [Suspect]
     Active Substance: BOSENTAN
     Indication: PULMONARY ARTERIAL HYPERTENSION
     Dosage: 125 MG, BID
     Route: 048
     Dates: start: 20130419
  2. LASIX [Concomitant]
     Active Substance: FUROSEMIDE
     Dosage: 40 MG, UNK
  3. LEVOTHYROXINE. [Concomitant]
     Active Substance: LEVOTHYROXINE
     Dosage: 88 MCG, UNK
     Dates: start: 20131021
  4. KCL [Concomitant]
     Active Substance: POTASSIUM CHLORIDE
     Dosage: 10 MG, UNK
     Dates: start: 20130913
  5. RANITIDINE [Concomitant]
     Active Substance: RANITIDINE\RANITIDINE HYDROCHLORIDE
     Dosage: 150 MG, UNK
     Dates: start: 20140428
  6. DEMADEX [Concomitant]
     Active Substance: TORSEMIDE
     Dosage: 20 MG, UNK
  7. ZOCOR [Concomitant]
     Active Substance: SIMVASTATIN
     Dosage: UNK
     Dates: start: 201310
  8. TRACLEER [Suspect]
     Active Substance: BOSENTAN
     Dosage: 62.5 MG, BID
     Route: 048
  9. ADCIRCA [Concomitant]
     Active Substance: TADALAFIL
  10. SERTRALINE [Concomitant]
     Active Substance: SERTRALINE HYDROCHLORIDE
     Dosage: 100 MG, UNK
     Dates: start: 201304
  11. TREPROSTINIL DIOLAMIN [Concomitant]
     Active Substance: TREPROSTINIL DIOLAMINE
     Route: 048

REACTIONS (11)
  - Vomiting [Unknown]
  - Transfusion [Unknown]
  - Diverticulum [Recovering/Resolving]
  - Dyspnoea [Unknown]
  - Anaemia [Recovering/Resolving]
  - Headache [Unknown]
  - Volume blood decreased [Recovering/Resolving]
  - Haemoglobin decreased [Recovering/Resolving]
  - Asthenia [Unknown]
  - Erythema [Unknown]
  - Haemorrhoidal haemorrhage [Unknown]

NARRATIVE: CASE EVENT DATE: 201407
